FAERS Safety Report 16358368 (Version 1)
Quarter: 2019Q2

REPORT INFORMATION
  Report Type: Spontaneous
  Country: US (occurrence: US)
  Receive Date: 20190527
  Receipt Date: 20190527
  Transmission Date: 20190711
  Serious: Yes (Other)
  Sender: FDA-Public Use
  Company Number: US-ASTRAZENECA-2019SE78566

PATIENT
  Sex: Female

DRUGS (1)
  1. NEXIUM 24HR [Suspect]
     Active Substance: ESOMEPRAZOLE MAGNESIUM
     Route: 048

REACTIONS (6)
  - Chest discomfort [Unknown]
  - Gastric disorder [Unknown]
  - Oesophageal disorder [Unknown]
  - Dysphagia [Unknown]
  - Spinal disorder [Unknown]
  - Intentional product misuse [Unknown]
